FAERS Safety Report 4350512-4 (Version None)
Quarter: 2004Q2

REPORT INFORMATION
  Report Type: 
  Country: None (occurrence: None)
  Receive Date: 20040429
  Receipt Date: 20040421
  Transmission Date: 20050107
  Serious: Yes (Death, Hospitalization, Other)
  Sender: FDA-Public Use
  Company Number: A-US2003-02053

PATIENT
  Age: 75 Year
  Sex: Female

DRUGS (9)
  1. TRACLEER [Suspect]
     Indication: PULMONARY HYPERTENSION
     Dosage: SEE IMAGE
     Route: 048
     Dates: start: 20020104, end: 20040202
  2. FLOLAN [Concomitant]
  3. EVISTA [Concomitant]
  4. DIGOXIN [Concomitant]
  5. K-DUR (POTASSIUM HYDROCHLORIDE) [Concomitant]
  6. BUMEX [Concomitant]
  7. COUMADIN [Concomitant]
  8. PROTONIX [Concomitant]
  9. OXYGEN (OXYGEN) [Concomitant]

REACTIONS (12)
  - ACTIVATED PARTIAL THROMBOPLASTIN TIME PROLONGED [None]
  - ASPARTATE AMINOTRANSFERASE INCREASED [None]
  - BLOOD ALKALINE PHOSPHATASE INCREASED [None]
  - CATHETER SEPSIS [None]
  - CENTRAL LINE INFECTION [None]
  - HYPOTENSION [None]
  - INCONTINENCE [None]
  - LIVER FUNCTION TEST ABNORMAL [None]
  - PULMONARY HYPERTENSION [None]
  - RENAL FAILURE ACUTE [None]
  - RESPIRATORY FAILURE [None]
  - THROMBOCYTOPENIA [None]
